FAERS Safety Report 19822000 (Version 1)
Quarter: 2021Q3

REPORT INFORMATION
  Report Type: Spontaneous
  Country: US (occurrence: US)
  Receive Date: 20210913
  Receipt Date: 20210913
  Transmission Date: 20211014
  Serious: No
  Sender: FDA-Public Use
  Company Number: US-CELGENEUS-USA-20210901047

PATIENT
  Age: 79 Year
  Sex: Female
  Weight: 41.77 kg

DRUGS (1)
  1. REVLIMID [Suspect]
     Active Substance: LENALIDOMIDE
     Indication: PLASMA CELL MYELOMA
     Dosage: 25 MILLIGRAM
     Route: 048
     Dates: start: 20210115, end: 20210831

REACTIONS (2)
  - Blood bilirubin increased [Unknown]
  - Dehydration [Unknown]

NARRATIVE: CASE EVENT DATE: 20210831
